FAERS Safety Report 8177805 (Version 2)
Quarter: 2012Q4

REPORT INFORMATION
  Report Type: Report from Study
  Country: DE (occurrence: DE)
  Receive Date: 20111012
  Receipt Date: 20121220
  Transmission Date: 20130627
  Serious: Yes (Hospitalization)
  Sender: FDA-Public Use
  Company Number: DE-ABBOTT-11P-062-0838724-00

PATIENT
  Sex: Female

DRUGS (4)
  1. HUMIRA 40 MG/ 0.8 ML PRE-FILLED SYRINGE [Suspect]
     Indication: CROHN^S DISEASE
     Dates: start: 20091229
  2. AMITRIPTYLIN [Concomitant]
     Indication: PRODUCT USED FOR UNKNOWN INDICATION
  3. ENTOCORT [Concomitant]
     Indication: CROHN^S DISEASE
  4. LOPERAMID [Concomitant]
     Indication: CROHN^S DISEASE

REACTIONS (8)
  - Oesophagitis [Unknown]
  - Dry mouth [Unknown]
  - Tongue discolouration [Unknown]
  - Dysphonia [Unknown]
  - Burning mouth syndrome [Unknown]
  - Gastric pH decreased [Unknown]
  - Stomatitis [Not Recovered/Not Resolved]
  - Pharyngeal inflammation [Not Recovered/Not Resolved]
